FAERS Safety Report 8872822 (Version 1)
Quarter: 2012Q4

REPORT INFORMATION
  Report Type: 
  Country: GB (occurrence: GB)
  Receive Date: 20121030
  Receipt Date: 20121030
  Transmission Date: 20130627
  Serious: Yes (Hospitalization)
  Sender: FDA-Public Use
  Company Number: GB-ROCHE-1147378

PATIENT
  Age: 86 Year
  Sex: Male

DRUGS (11)
  1. AVASTIN [Suspect]
     Indication: PRODUCT USED FOR UNKNOWN INDICATION
     Route: 031
     Dates: start: 20120913, end: 20121009
  2. AVASTIN [Suspect]
     Indication: OFF LABEL USE
  3. AMLODIPINE [Concomitant]
  4. DOXAZOSIN [Concomitant]
  5. FLUTICASONE [Concomitant]
  6. LANSOPRAZOLE [Concomitant]
  7. MACROGOL [Concomitant]
  8. SALBUTAMOL [Concomitant]
  9. SENNA [Concomitant]
  10. SIMVASTATIN [Concomitant]
  11. TIOTROPIUM BROMIDE [Concomitant]

REACTIONS (5)
  - Lower respiratory tract infection [Unknown]
  - Endophthalmitis [Recovering/Resolving]
  - Eye inflammation [Unknown]
  - Intraocular pressure increased [Unknown]
  - Malaise [Unknown]
